FAERS Safety Report 23318607 (Version 1)
Quarter: 2023Q4

REPORT INFORMATION
  Report Type: Spontaneous
  Country: US (occurrence: None)
  Receive Date: 20231220
  Receipt Date: 20231220
  Transmission Date: 20240110
  Serious: Yes (Hospitalization)
  Sender: FDA-Public Use
  Company Number: US-ROCHE-3478429

PATIENT
  Age: 69 Year
  Sex: Female

DRUGS (2)
  1. ACTEMRA [Suspect]
     Active Substance: TOCILIZUMAB
     Indication: Polymyalgia rheumatica
     Dosage: STRENGTH:162MG/0.9ML
     Route: 058
     Dates: start: 20220929
  2. ACTEMRA [Suspect]
     Active Substance: TOCILIZUMAB

REACTIONS (3)
  - Intestinal obstruction [Recovered/Resolved]
  - White blood cell count increased [Recovered/Resolved]
  - Off label use [Unknown]
